FAERS Safety Report 7014431-7 (Version None)
Quarter: 2010Q3

REPORT INFORMATION
  Report Type: 
  Country: None (occurrence: None)
  Receive Date: 20100927
  Receipt Date: 20100922
  Transmission Date: 20110219
  Serious: Yes (Life-Threatening, Hospitalization)
  Sender: FDA-Public Use
  Company Number: PHHY2010BE62525

PATIENT
  Age: 22 Year
  Sex: Female
  Weight: 66 kg

DRUGS (7)
  1. EXJADE [Suspect]
     Indication: HAEMOSIDEROSIS
     Dosage: 30 MG/ KG
     Route: 048
     Dates: start: 20100501
  2. ZESTRIL [Concomitant]
  3. KREDEX [Concomitant]
  4. BUMEX [Concomitant]
  5. FOLAVIT [Concomitant]
  6. ASAFLOW [Concomitant]
  7. SINTROM [Concomitant]

REACTIONS (3)
  - CARDIOVERSION [None]
  - CIRCULATORY COLLAPSE [None]
  - VENTRICULAR FIBRILLATION [None]
